FAERS Safety Report 9005504 (Version 1)
Quarter: 2013Q1

REPORT INFORMATION
  Report Type: Spontaneous
  Country: US (occurrence: US)
  Receive Date: 20130109
  Receipt Date: 20130109
  Transmission Date: 20140127
  Serious: Yes (Other)
  Sender: FDA-Public Use
  Company Number: US-BAYER-2013-000729

PATIENT
  Age: 35 Year
  Sex: Male
  Weight: 68.93 kg

DRUGS (1)
  1. BACTINE PAIN RELIEVING CLEANSING ANESTHETIC SPRAY [Suspect]
     Indication: THERMAL BURN
     Dosage: 2 DF, QD
     Route: 048
     Dates: start: 20121223, end: 20121224

REACTIONS (6)
  - Burn infection [Recovered/Resolved]
  - Hypersensitivity [Recovered/Resolved]
  - Rash [Recovered/Resolved]
  - Tenderness [Recovered/Resolved]
  - Tenderness [Not Recovered/Not Resolved]
  - Off label use [None]
